FAERS Safety Report 7782029-9 (Version None)
Quarter: 2011Q3

REPORT INFORMATION
  Report Type: 
  Country: None (occurrence: None)
  Receive Date: 20110927
  Receipt Date: 20110922
  Transmission Date: 20111222
  Serious: Yes (Hospitalization)
  Sender: FDA-Public Use
  Company Number: PHHY2011FR72918

PATIENT
  Sex: Male
  Weight: 74 kg

DRUGS (2)
  1. EVEROLIMUS [Suspect]
     Indication: RENAL CANCER METASTATIC
     Dosage: 10 MG, DAILY
     Route: 048
     Dates: start: 20101203, end: 20101220
  2. EVEROLIMUS [Suspect]
     Dosage: 10 MG, DAILY
     Route: 048
     Dates: start: 20101228

REACTIONS (2)
  - PYREXIA [None]
  - LUNG DISORDER [None]
